FAERS Safety Report 9642177 (Version 2)
Quarter: 2014Q1

REPORT INFORMATION
  Report Type: Spontaneous
  Country: JP (occurrence: JP)
  Receive Date: 20131023
  Receipt Date: 20140122
  Transmission Date: 20141002
  Serious: Yes (Hospitalization, Other)
  Sender: FDA-Public Use
  Company Number: JP-ROCHE-1292972

PATIENT
  Age: 13 Year
  Sex: Female

DRUGS (3)
  1. CELLCEPT [Suspect]
     Indication: PROPHYLAXIS AGAINST TRANSPLANT REJECTION
     Dosage: FOR THE TRANSPLANT TWO DAYS
     Route: 048
  2. RITUXIMAB [Suspect]
     Indication: PRODUCT USED FOR UNKNOWN INDICATION
     Dosage: SINGLE DOSE ADMINISTRATION TRANSPLANT FOUR DAYS AGO
     Route: 065
  3. TACROLIMUS HYDRATE [Concomitant]
     Indication: PROPHYLAXIS AGAINST TRANSPLANT REJECTION
     Dosage: FOR THE TRANSPLANT TWO DAYS
     Route: 065

REACTIONS (2)
  - Cytomegalovirus infection [Unknown]
  - Neutropenia [Recovered/Resolved]
